FAERS Safety Report 23484545 (Version 1)
Quarter: 2024Q1

REPORT INFORMATION
  Report Type: Spontaneous
  Country: CN (occurrence: CN)
  Receive Date: 20240206
  Receipt Date: 20240206
  Transmission Date: 20240410
  Serious: Yes (Hospitalization)
  Sender: FDA-Public Use
  Company Number: CN-BAYER-2024A019674

PATIENT
  Age: 68 Year
  Sex: Male
  Weight: 67 kg

DRUGS (13)
  1. RIVAROXABAN [Suspect]
     Active Substance: RIVAROXABAN
     Indication: Anticoagulant therapy
     Dosage: 10 MG, QD
     Route: 048
     Dates: start: 20240110, end: 20240116
  2. ACETAMINOPHEN\DIHYDROCODEINE BITARTRATE [Suspect]
     Active Substance: ACETAMINOPHEN\DIHYDROCODEINE BITARTRATE
     Indication: Analgesic therapy
     Dosage: 500 MG, QID
     Route: 048
     Dates: start: 20240113, end: 20240119
  3. OMEPRAZOLE SODIUM [Suspect]
     Active Substance: OMEPRAZOLE SODIUM
     Indication: Gastrointestinal disorder prophylaxis
     Dosage: 40 MG, QD WITH 100ML 0.9% SODIUM CHLORIDE
     Route: 041
     Dates: start: 20240102, end: 20240106
  4. OMEPRAZOLE SODIUM [Suspect]
     Active Substance: OMEPRAZOLE SODIUM
     Indication: Gastrointestinal disorder prophylaxis
     Dosage: 40 MG, QD WITH 100ML 0.9% SODIUM CHLORIDE
     Route: 041
     Dates: start: 20240108, end: 20240112
  5. OMEPRAZOLE SODIUM [Suspect]
     Active Substance: OMEPRAZOLE SODIUM
     Indication: Gastrointestinal disorder prophylaxis
     Dosage: 40 MG, QD WITH 100ML 0.9% SODIUM CHLORIDE
     Route: 041
     Dates: start: 20240116
  6. BEVACIZUMAB [Suspect]
     Active Substance: BEVACIZUMAB
     Indication: Non-small cell lung cancer metastatic
     Dosage: 700 MG, QD WITH 250ML 0.9% SODIUM CHLORIDE
     Route: 041
     Dates: start: 20240110, end: 20240110
  7. BEVACIZUMAB [Suspect]
     Active Substance: BEVACIZUMAB
     Indication: Metastases to central nervous system
  8. DEXAMETHASONE SODIUM PHOSPHATE [Concomitant]
     Active Substance: DEXAMETHASONE PHOSPHATE\DEXAMETHASONE SODIUM PHOSPHATE
     Indication: Brain oedema
     Dosage: 10 MG, QD WITH 100ML 0.9% SODIUM CHLORIDE
     Route: 041
     Dates: start: 20240102, end: 20240106
  9. DEXAMETHASONE SODIUM PHOSPHATE [Concomitant]
     Active Substance: DEXAMETHASONE PHOSPHATE\DEXAMETHASONE SODIUM PHOSPHATE
     Indication: Brain oedema
     Dosage: 10 MG, QD WITH 100ML 0.9% SODIUM CHLORIDE
     Route: 041
     Dates: start: 20240108, end: 20240112
  10. DEXAMETHASONE SODIUM PHOSPHATE [Concomitant]
     Active Substance: DEXAMETHASONE PHOSPHATE\DEXAMETHASONE SODIUM PHOSPHATE
     Indication: Brain oedema
     Dosage: 10 MG, QD WITH 100ML 0.9% SODIUM CHLORIDE
     Route: 041
     Dates: start: 20240116
  11. MANNITOL [Concomitant]
     Active Substance: MANNITOL
     Indication: Brain oedema
     Dosage: 125 ML, BID
     Route: 041
     Dates: start: 20240102, end: 20240108
  12. MANNITOL [Concomitant]
     Active Substance: MANNITOL
     Indication: Brain oedema
     Dosage: 125 ML, TID
     Route: 041
     Dates: start: 20240109, end: 20240110
  13. MANNITOL [Concomitant]
     Active Substance: MANNITOL
     Indication: Brain oedema
     Dosage: 125 ML, BID
     Route: 041
     Dates: start: 20240111, end: 20240112

REACTIONS (1)
  - Drug-induced liver injury [Recovering/Resolving]

NARRATIVE: CASE EVENT DATE: 20240114
